FAERS Safety Report 5027029-7 (Version None)
Quarter: 2006Q2

REPORT INFORMATION
  Report Type: 
  Country: None (occurrence: None)
  Receive Date: 20060609
  Receipt Date: 20060530
  Transmission Date: 20061013
  Serious: Yes (Other)
  Sender: FDA-Public Use
  Company Number: 2006070455

PATIENT
  Age: 22 Year
  Sex: Male
  Weight: 80 kg

DRUGS (2)
  1. DILANTIN KAPSEAL [Suspect]
     Indication: EPILEPSY
     Dosage: 300 MG (1 D), ORAL
     Route: 048
     Dates: start: 19731114
  2. PHENOBARBITAL TAB [Concomitant]

REACTIONS (6)
  - ALANINE AMINOTRANSFERASE INCREASED [None]
  - EOSINOPHILIA [None]
  - HEPATOMEGALY [None]
  - PYREXIA [None]
  - RASH MACULO-PAPULAR [None]
  - SPLENOMEGALY [None]
